FAERS Safety Report 7706704-7 (Version None)
Quarter: 2011Q3

REPORT INFORMATION
  Report Type: 
  Country: None (occurrence: None)
  Receive Date: 20110804
  Receipt Date: 20110616
  Transmission Date: 20111222
  Serious: No
  Sender: FDA-Public Use
  Company Number: 2011-09589

PATIENT
  Age: 70 Year
  Sex: Male
  Weight: 64.9 kg

DRUGS (3)
  1. BIAXIN [Suspect]
     Indication: LYME DISEASE
     Dosage: ORAL
     Route: 048
     Dates: start: 20070101
  2. RAPAFLO [Suspect]
     Indication: BENIGN PROSTATIC HYPERPLASIA
     Dosage: ONE CAPSULE DAILY, ORAL, ONE CAPSULE DAILY, ORAL
     Route: 048
     Dates: start: 20110421, end: 20110516
  3. RAPAFLO [Suspect]
     Indication: BENIGN PROSTATIC HYPERPLASIA
     Dosage: ONE CAPSULE DAILY, ORAL, ONE CAPSULE DAILY, ORAL
     Route: 048
     Dates: start: 20100101, end: 20110420

REACTIONS (2)
  - DYSPNOEA [None]
  - LABELLED DRUG-DRUG INTERACTION MEDICATION ERROR [None]
